FAERS Safety Report 12840186 (Version 1)
Quarter: 2016Q4

REPORT INFORMATION
  Report Type: Report from Study
  Country: AU (occurrence: AU)
  Receive Date: 20161012
  Receipt Date: 20161012
  Transmission Date: 20170207
  Serious: Yes (Death, Other)
  Sender: FDA-Public Use
  Company Number: AU-ASTRAZENECA-2013SE35275

PATIENT
  Age: 31411 Day
  Sex: Male
  Weight: 74 kg

DRUGS (3)
  1. ZOLADEX [Suspect]
     Active Substance: GOSERELIN ACETATE
     Indication: PROSTATE CANCER
     Route: 058
     Dates: start: 20130101
  2. LASIX [Concomitant]
     Active Substance: FUROSEMIDE
  3. ONTO FLUID [Concomitant]

REACTIONS (10)
  - Lung infection [Not Recovered/Not Resolved]
  - Anaemia [Unknown]
  - Weight increased [Not Recovered/Not Resolved]
  - Oedema peripheral [Unknown]
  - Death [Fatal]
  - Fatigue [Unknown]
  - Waist circumference increased [Not Recovered/Not Resolved]
  - Dyspnoea exertional [Unknown]
  - Fluid retention [Not Recovered/Not Resolved]
  - Oedema peripheral [Recovered/Resolved]

NARRATIVE: CASE EVENT DATE: 20130101
